FAERS Safety Report 8429552-1 (Version None)
Quarter: 2012Q2

REPORT INFORMATION
  Report Type: 
  Country: None (occurrence: None)
  Receive Date: 20120612
  Receipt Date: 20120604
  Transmission Date: 20120825
  Serious: Yes (Life-Threatening, Other)
  Sender: FDA-Public Use
  Company Number: US-CELGENEUS-163-21880-12061038

PATIENT
  Sex: Male
  Weight: 128.48 kg

DRUGS (17)
  1. LIPITOR [Concomitant]
     Route: 048
  2. KLONOPIN [Concomitant]
     Route: 048
  3. INSULIN [Concomitant]
     Route: 048
  4. REVLIMID [Suspect]
     Dosage: 10 MILLIGRAM
     Route: 048
     Dates: start: 20120312, end: 20120605
  5. LOVENOX [Concomitant]
     Dosage: 40 MILLIGRAM
     Route: 058
     Dates: start: 20090622
  6. JANUVIA [Concomitant]
     Route: 048
  7. METOPROLOL TARTRATE [Concomitant]
     Dosage: 1AM, 2QPM
     Route: 048
  8. TRILEX [Concomitant]
     Dosage: 135 MILLIGRAM
     Route: 048
     Dates: start: 20100501
  9. REVLIMID [Suspect]
     Dosage: 10-20 MG
     Route: 048
     Dates: start: 20100601
  10. LORTAB [Concomitant]
     Indication: PAIN
     Route: 048
  11. NEXIUM [Concomitant]
     Route: 048
  12. REVLIMID [Suspect]
     Indication: MULTIPLE MYELOMA
     Dosage: 10 MILLIGRAM
     Route: 048
     Dates: start: 20090701
  13. PLAVIX [Concomitant]
     Route: 048
     Dates: start: 20120501
  14. ASPIRIN [Concomitant]
     Dosage: 325 MILLIGRAM
     Route: 048
     Dates: start: 20120501
  15. DEXAMETHASONE [Concomitant]
     Route: 048
  16. AVAPRO [Concomitant]
     Route: 048
  17. ZOMETA [Concomitant]
     Route: 041

REACTIONS (10)
  - DRUG INEFFECTIVE [None]
  - SOMNOLENCE [None]
  - STOMATITIS [None]
  - MYOCARDIAL INFARCTION [None]
  - NEUROPATHY PERIPHERAL [None]
  - DIARRHOEA [None]
  - FATIGUE [None]
  - THROMBOCYTOPENIA [None]
  - BENCE JONES PROTEIN URINE PRESENT [None]
  - TYPE 2 DIABETES MELLITUS [None]
